FAERS Safety Report 7807988-7 (Version None)
Quarter: 2011Q4

REPORT INFORMATION
  Report Type: 
  Country: None (occurrence: None)
  Receive Date: 20111011
  Receipt Date: 20111011
  Transmission Date: 20120403
  Serious: Yes (Hospitalization)
  Sender: FDA-Public Use
  Company Number: None

PATIENT
  Age: 74 Year
  Sex: Female

DRUGS (10)
  1. VITAMIN D [Concomitant]
     Route: 048
  2. MEGESTROL ACETATE [Concomitant]
     Route: 048
  3. ODANSETRON [Concomitant]
     Route: 048
  4. COMPAZINE [Concomitant]
     Route: 048
  5. GEMZAR [Suspect]
     Indication: ADENOCARCINOMA PANCREAS
     Dosage: 1860 MG
     Route: 042
     Dates: start: 20110915, end: 20110922
  6. TARCEVA [Concomitant]
     Indication: ADENOCARCINOMA PANCREAS
     Dosage: 150MG
     Route: 048
     Dates: start: 20110915, end: 20110922
  7. LORAZEPAM [Concomitant]
     Route: 048
  8. DOXYCYCLINE [Concomitant]
     Route: 048
  9. MORPHINE [Concomitant]
  10. LEVOTHYROXINE SODIUM [Concomitant]
     Route: 048

REACTIONS (14)
  - DRY MOUTH [None]
  - TENDERNESS [None]
  - PALLOR [None]
  - PNEUMONIA [None]
  - MENTAL STATUS CHANGES [None]
  - HYPONATRAEMIA [None]
  - HYPOKALAEMIA [None]
  - HAEMOGLOBIN DECREASED [None]
  - BLOOD PRESSURE DIASTOLIC DECREASED [None]
  - OEDEMA PERIPHERAL [None]
  - SLOW RESPONSE TO STIMULI [None]
  - LETHARGY [None]
  - SOMNOLENCE [None]
  - HYPOCALCAEMIA [None]
